FAERS Safety Report 8001954-7 (Version None)
Quarter: 2011Q4

REPORT INFORMATION
  Report Type: 
  Country: None (occurrence: None)
  Receive Date: 20111220
  Receipt Date: 20111202
  Transmission Date: 20120403
  Serious: Yes (Other)
  Sender: FDA-Public Use
  Company Number: JPI-P-017921

PATIENT
  Age: 44 Year
  Sex: Female
  Weight: 54.4316 kg

DRUGS (12)
  1. ZYRTEC [Concomitant]
  2. MULTI-VITAMINS [Concomitant]
  3. FISH OIL [Concomitant]
  4. MODAFINIL [Concomitant]
  5. NUVIGIL [Concomitant]
  6. BIRTH CONTROL [Concomitant]
  7. XYREM [Suspect]
     Indication: NARCOLEPSY
     Dosage: 4.5 GM (2.25 GM, 2 IN 1 D), ORAL 6 GM (3 GM, 2 IN 1 D), ORAL 7.5 GM (3.75 GM, 2 IN 1 D), ORAL 9 GM (
     Route: 048
     Dates: start: 20111001, end: 20111025
  8. XYREM [Suspect]
     Indication: SOMNOLENCE
     Dosage: 4.5 GM (2.25 GM, 2 IN 1 D), ORAL 6 GM (3 GM, 2 IN 1 D), ORAL 7.5 GM (3.75 GM, 2 IN 1 D), ORAL 9 GM (
     Route: 048
     Dates: start: 20111001, end: 20111025
  9. XYREM [Suspect]
     Indication: NARCOLEPSY
     Dosage: 4.5 GM (2.25 GM, 2 IN 1 D), ORAL 6 GM (3 GM, 2 IN 1 D), ORAL 7.5 GM (3.75 GM, 2 IN 1 D), ORAL 9 GM (
     Route: 048
     Dates: start: 20111014, end: 20111001
  10. XYREM [Suspect]
     Indication: SOMNOLENCE
     Dosage: 4.5 GM (2.25 GM, 2 IN 1 D), ORAL 6 GM (3 GM, 2 IN 1 D), ORAL 7.5 GM (3.75 GM, 2 IN 1 D), ORAL 9 GM (
     Route: 048
     Dates: start: 20111014, end: 20111001
  11. XYREM [Suspect]
     Indication: NARCOLEPSY
     Dosage: 4.5 GM (2.25 GM, 2 IN 1 D), ORAL 6 GM (3 GM, 2 IN 1 D), ORAL 7.5 GM (3.75 GM, 2 IN 1 D), ORAL 9 GM (
     Route: 048
     Dates: start: 20111026, end: 20111101
  12. XYREM [Suspect]
     Indication: SOMNOLENCE
     Dosage: 4.5 GM (2.25 GM, 2 IN 1 D), ORAL 6 GM (3 GM, 2 IN 1 D), ORAL 7.5 GM (3.75 GM, 2 IN 1 D), ORAL 9 GM (
     Route: 048
     Dates: start: 20111026, end: 20111101

REACTIONS (7)
  - HIP FRACTURE [None]
  - URGE INCONTINENCE [None]
  - MEMORY IMPAIRMENT [None]
  - DIZZINESS [None]
  - MUSCLE STRAIN [None]
  - DISORIENTATION [None]
  - FALL [None]
